FAERS Safety Report 16189055 (Version 3)
Quarter: 2019Q2

REPORT INFORMATION
  Report Type: Other
  Country: GB (occurrence: GB)
  Receive Date: 20190412
  Receipt Date: 20190522
  Transmission Date: 20190711
  Serious: Yes (Other)
  Sender: FDA-Public Use
  Company Number: GB-STRIDES ARCOLAB LIMITED-2019SP003105

PATIENT

DRUGS (23)
  1. BUSPIRONE HYDROCHLORIDE. [Suspect]
     Active Substance: BUSPIRONE HYDROCHLORIDE
     Indication: PANIC ATTACK
     Dosage: UNK
     Route: 065
  2. BUSPIRONE HYDROCHLORIDE. [Suspect]
     Active Substance: BUSPIRONE HYDROCHLORIDE
     Indication: ANXIETY
     Dosage: UNK
     Route: 065
  3. BUSPIRONE HYDROCHLORIDE. [Suspect]
     Active Substance: BUSPIRONE HYDROCHLORIDE
     Indication: EMETOPHOBIA
     Dosage: UNK
     Route: 065
  4. BUSPIRONE HYDROCHLORIDE. [Suspect]
     Active Substance: BUSPIRONE HYDROCHLORIDE
     Dosage: UNK
     Route: 065
  5. LORAZEPAM. [Suspect]
     Active Substance: LORAZEPAM
     Indication: SUICIDAL IDEATION
     Dosage: UNK
     Route: 065
  6. BUSPIRONE HYDROCHLORIDE. [Suspect]
     Active Substance: BUSPIRONE HYDROCHLORIDE
     Indication: DEPRESSION
     Dosage: UNK
     Route: 065
  7. LORAZEPAM. [Suspect]
     Active Substance: LORAZEPAM
     Indication: PANIC ATTACK
     Dosage: UNK
     Route: 065
  8. MIRTAZAPINE. [Suspect]
     Active Substance: MIRTAZAPINE
     Indication: EMETOPHOBIA
     Dosage: UNK
     Route: 065
  9. LORAZEPAM. [Suspect]
     Active Substance: LORAZEPAM
     Indication: DEPRESSION
     Dosage: UNK
     Route: 065
  10. ESCITALOPRAM [Suspect]
     Active Substance: ESCITALOPRAM OXALATE
     Indication: SUICIDAL IDEATION
     Dosage: 15 MG, UNKNOWN
     Route: 065
  11. LORAZEPAM. [Suspect]
     Active Substance: LORAZEPAM
     Indication: EMETOPHOBIA
     Dosage: UNK
     Route: 065
  12. BUSPIRONE HYDROCHLORIDE. [Suspect]
     Active Substance: BUSPIRONE HYDROCHLORIDE
     Dosage: UNK
     Route: 065
  13. MIRTAZAPINE. [Suspect]
     Active Substance: MIRTAZAPINE
     Indication: SUICIDAL IDEATION
     Dosage: UNK
     Route: 065
  14. BUSPIRONE HYDROCHLORIDE. [Suspect]
     Active Substance: BUSPIRONE HYDROCHLORIDE
     Indication: SUICIDAL IDEATION
     Dosage: UNK
     Route: 065
  15. MIRTAZAPINE. [Suspect]
     Active Substance: MIRTAZAPINE
     Indication: DEPRESSION
     Dosage: 15 MG, UNKNOWN
     Route: 065
  16. LORAZEPAM. [Suspect]
     Active Substance: LORAZEPAM
     Indication: ANXIETY
     Dosage: UNK
     Route: 065
  17. ESCITALOPRAM [Suspect]
     Active Substance: ESCITALOPRAM OXALATE
     Indication: EMETOPHOBIA
     Dosage: CUTTING BITS TO 5 MG TO REACH APPROX. 12.5 MG IN 6 WEEKS
     Route: 065
     Dates: start: 2014
  18. ESCITALOPRAM [Suspect]
     Active Substance: ESCITALOPRAM OXALATE
     Indication: DEPRESSION
     Dosage: REDUCE TO 12.5 MG OVER EIGHT WEEKS
     Route: 065
     Dates: start: 2017
  19. ESCITALOPRAM [Suspect]
     Active Substance: ESCITALOPRAM OXALATE
     Indication: ANXIETY
     Dosage: 15 MG, UNKNOWN
     Route: 065
  20. BUSPIRONE HYDROCHLORIDE. [Suspect]
     Active Substance: BUSPIRONE HYDROCHLORIDE
     Dosage: UNK
     Route: 065
  21. MIRTAZAPINE. [Suspect]
     Active Substance: MIRTAZAPINE
     Indication: ANXIETY
     Dosage: UNK
     Route: 065
  22. MIRTAZAPINE. [Suspect]
     Active Substance: MIRTAZAPINE
     Indication: PANIC ATTACK
     Dosage: UNK
     Route: 065
  23. ESCITALOPRAM [Suspect]
     Active Substance: ESCITALOPRAM OXALATE
     Indication: PANIC ATTACK
     Dosage: 15 MG, UNKNOWN
     Route: 065

REACTIONS (6)
  - Mental disorder [Unknown]
  - Drug withdrawal syndrome [Unknown]
  - Off label use [Unknown]
  - General physical health deterioration [Unknown]
  - Electrocardiogram QT prolonged [Unknown]
  - Wrong technique in product usage process [Unknown]
